FAERS Safety Report 5196260-2 (Version None)
Quarter: 2006Q4

REPORT INFORMATION
  Report Type: 
  Country: None (occurrence: None)
  Receive Date: 20061222
  Receipt Date: 20061212
  Transmission Date: 20070319
  Serious: Yes (Other)
  Sender: FDA-Public Use
  Company Number: 2006152839

PATIENT

DRUGS (1)
  1. SULPERAZON (SULBACTAM, CEFOPERAZONE) [Suspect]
     Indication: CHOLECYSTITIS ACUTE
     Dosage: INTRAVENOUS
     Route: 042
     Dates: end: 20061201

REACTIONS (1)
  - COMA [None]
